FAERS Safety Report 5152192-7 (Version None)
Quarter: 2006Q4

REPORT INFORMATION
  Report Type: 
  Country: None (occurrence: None)
  Receive Date: 20061116
  Receipt Date: 20061106
  Transmission Date: 20070319
  Serious: Yes (Hospitalization)
  Sender: FDA-Public Use
  Company Number: FR-GLAXOSMITHKLINE-B0446667A

PATIENT
  Age: 67 Year
  Sex: Female

DRUGS (6)
  1. NARAMIG [Suspect]
     Indication: MIGRAINE
     Dosage: 2.5MG PER DAY
     Route: 048
     Dates: end: 20061006
  2. TOPALGIC (FRANCE) [Suspect]
     Dosage: 1UNIT THREE TIMES PER DAY
     Route: 048
     Dates: end: 20061006
  3. PROPOFOL [Suspect]
     Dosage: 1TAB THREE TIMES PER DAY
     Route: 048
     Dates: end: 20061006
  4. NEBIVOLOL HCL [Concomitant]
     Indication: ESSENTIAL HYPERTENSION
     Dosage: 1UNIT PER DAY
     Route: 048
  5. CHOLECALCIFEROL [Concomitant]
     Indication: OSTEOPOROSIS
     Dosage: 1UNIT WEEKLY
     Route: 048
  6. ALENDRONATE SODIUM [Concomitant]
     Indication: OSTEOPOROSIS
     Dosage: 1UNIT WEEKLY
     Route: 048

REACTIONS (6)
  - ABDOMINAL PAIN UPPER [None]
  - ASTHENIA [None]
  - DRUG ABUSER [None]
  - HEADACHE [None]
  - NAUSEA [None]
  - VOMITING [None]
